FAERS Safety Report 13049087 (Version 1)
Quarter: 2016Q4

REPORT INFORMATION
  Report Type: Report from Study
  Country: None (occurrence: NZ)
  Receive Date: 20161221
  Receipt Date: 20161221
  Transmission Date: 20170207
  Serious: Yes (Other)
  Sender: FDA-Public Use
  Company Number: NZ-ABBVIE-16K-118-1808278-00

PATIENT
  Sex: Female

DRUGS (1)
  1. HUMIRA [Suspect]
     Active Substance: ADALIMUMAB
     Indication: RHEUMATOID ARTHRITIS
     Route: 058
     Dates: start: 2011

REACTIONS (3)
  - Fatigue [Unknown]
  - Pain [Unknown]
  - Bone cyst [Not Recovered/Not Resolved]

NARRATIVE: CASE EVENT DATE: 2016
